FAERS Safety Report 4511736-6 (Version None)
Quarter: 2004Q4

REPORT INFORMATION
  Report Type: 
  Country: None (occurrence: None)
  Receive Date: 20041129
  Receipt Date: 20041111
  Transmission Date: 20050328
  Serious: Yes (Disabling)
  Sender: FDA-Public Use
  Company Number: 200421322GDDC

PATIENT
  Age: 44 Year
  Sex: Female
  Weight: 68.5 kg

DRUGS (7)
  1. INSULIN GLARGINE [Suspect]
     Indication: DIABETES MELLITUS INSULIN-DEPENDENT
     Dosage: DOSE: 12-14; DOSE UNIT: UNITS
     Route: 058
     Dates: start: 20030601, end: 20030901
  2. INSULATARD NPH HUMAN [Suspect]
     Dates: start: 20030401, end: 20030501
  3. NOVOMIX [Suspect]
     Dates: start: 20030501, end: 20030601
  4. NOVORAPID [Suspect]
     Dates: start: 20030901, end: 20040101
  5. NOVORAPID [Suspect]
     Dates: start: 20040101, end: 20040701
  6. TRIMETHOPRIM [Concomitant]
     Indication: URINARY TRACT INFECTION
     Route: 048
     Dates: start: 20030601, end: 20030601
  7. NOVORAPID [Concomitant]
     Indication: DIABETES MELLITUS INSULIN-DEPENDENT
     Dosage: DOSE: VARIABLE; DOSE UNIT: UNITS
     Route: 058
     Dates: start: 20030601, end: 20040701

REACTIONS (18)
  - ANXIETY [None]
  - BLOOD GLUCOSE FLUCTUATION [None]
  - COGNITIVE DISORDER [None]
  - DECREASED APPETITE [None]
  - DEPRESSION [None]
  - DISSOCIATION [None]
  - DRUG INTOLERANCE [None]
  - EATING DISORDER [None]
  - EXERCISE LACK OF [None]
  - FATIGUE [None]
  - HYPERSENSITIVITY [None]
  - HYPERSOMNIA [None]
  - HYPOGLYCAEMIA [None]
  - INJECTION SITE PAIN [None]
  - LIBIDO DECREASED [None]
  - MENSTRUATION IRREGULAR [None]
  - PERSONALITY CHANGE [None]
  - SOCIAL AVOIDANT BEHAVIOUR [None]
